FAERS Safety Report 16345474 (Version 2)
Quarter: 2019Q2

REPORT INFORMATION
  Report Type: Spontaneous
  Country: IT (occurrence: IT)
  Receive Date: 20190523
  Receipt Date: 20190610
  Transmission Date: 20190711
  Serious: Yes (Other)
  Sender: FDA-Public Use
  Company Number: IT-B.I. PHARMACEUTICALS,INC./RIDGEFIELD-2019-BI-022871

PATIENT
  Age: 80 Year
  Sex: Female

DRUGS (2)
  1. PRITOR (TELMISARTAN) [Suspect]
     Active Substance: TELMISARTAN
     Indication: HYPERTENSION
     Route: 065
     Dates: start: 2009
  2. RYTMOBETA [Suspect]
     Active Substance: SOTALOL HYDROCHLORIDE
     Indication: MITRAL VALVE PROLAPSE
     Route: 065
     Dates: start: 2009

REACTIONS (2)
  - Pancreatitis [Unknown]
  - Liver disorder [Unknown]

NARRATIVE: CASE EVENT DATE: 2018
